FAERS Safety Report 9747033 (Version 2)
Quarter: 2014Q1

REPORT INFORMATION
  Report Type: Report from Study
  Country: US (occurrence: US)
  Receive Date: 20131211
  Receipt Date: 20140120
  Transmission Date: 20141002
  Serious: Yes (Hospitalization, Other)
  Sender: FDA-Public Use
  Company Number: US-BAXTER-2013BAX048807

PATIENT
  Age: 66 Year
  Sex: Male
  Weight: 90.8 kg

DRUGS (3)
  1. ARALAST NP [Suspect]
     Indication: ALPHA-1 ANTI-TRYPSIN DEFICIENCY
     Route: 042
     Dates: start: 200706
  2. ZOLOFT [Concomitant]
     Indication: ANXIETY
  3. ASPIRIN [Concomitant]
     Indication: ANTICOAGULANT THERAPY

REACTIONS (1)
  - Cellulitis [Recovered/Resolved]
